FAERS Safety Report 15789088 (Version 1)
Quarter: 2019Q1

REPORT INFORMATION
  Report Type: Spontaneous
  Country: US (occurrence: US)
  Receive Date: 20190104
  Receipt Date: 20190104
  Transmission Date: 20190417
  Serious: No
  Sender: FDA-Public Use
  Company Number: US-PFIZER INC-2019004150

PATIENT
  Age: 58 Year
  Sex: Male

DRUGS (1)
  1. GENOTROPIN [Suspect]
     Active Substance: SOMATROPIN
     Dosage: 0.6 MG, DAILY
     Dates: start: 20160523

REACTIONS (8)
  - Blood glucose increased [Unknown]
  - Blood bilirubin increased [Unknown]
  - Blood testosterone decreased [Unknown]
  - Haemoglobin increased [Unknown]
  - Insulin-like growth factor increased [Unknown]
  - Glycosylated haemoglobin increased [Unknown]
  - Haematocrit increased [Unknown]
  - Microalbuminuria [Unknown]
